FAERS Safety Report 4600258-X (Version None)
Quarter: 2005Q1

REPORT INFORMATION
  Report Type: 
  Country: None (occurrence: None)
  Receive Date: 20050307
  Receipt Date: 20040924
  Transmission Date: 20050727
  Serious: Yes (Other)
  Sender: FDA-Public Use
  Company Number: FR-GLAXOSMITHKLINE-B0346839A

PATIENT
  Age: 38 Year
  Sex: Female
  Weight: 70 kg

DRUGS (7)
  1. LAMICTAL [Suspect]
     Indication: AFFECTIVE DISORDER
     Route: 048
     Dates: start: 20040209
  2. VIOXX [Suspect]
     Indication: OSTEOARTHRITIS
     Dosage: 1TAB PER DAY
     Route: 048
     Dates: start: 20040831, end: 20040918
  3. RABEPRAZOLE SODIUM [Suspect]
     Indication: GASTROINTESTINAL ULCER
     Dosage: 20MG PER DAY
     Route: 048
     Dates: start: 20040809, end: 20040918
  4. PARACETAMOL + TRAMADOL [Suspect]
     Indication: OSTEOARTHRITIS
     Dosage: 1TAB FOUR TIMES PER DAY
     Route: 048
     Dates: start: 20040831, end: 20040930
  5. ART 50 [Suspect]
     Indication: OSTEOARTHRITIS
     Dosage: 50MG PER DAY
     Route: 048
     Dates: start: 20040831
  6. ZYPREXA [Concomitant]
     Indication: AFFECTIVE DISORDER
     Dosage: 10MG PER DAY
     Route: 048
     Dates: start: 20040907, end: 20040913
  7. RIVOTRIL [Concomitant]
     Indication: OSTEOARTHRITIS
     Dosage: 10DROP PER DAY
     Route: 048
     Dates: start: 20040831

REACTIONS (12)
  - ABDOMINAL PAIN [None]
  - ALANINE AMINOTRANSFERASE INCREASED [None]
  - ASPARTATE AMINOTRANSFERASE INCREASED [None]
  - ASTHENIA [None]
  - CHROMATURIA [None]
  - DIARRHOEA [None]
  - LIPASE INCREASED [None]
  - NAUSEA [None]
  - OEDEMA [None]
  - PANCREATITIS ACUTE [None]
  - WEIGHT DECREASED [None]
  - WEIGHT INCREASED [None]
